FAERS Safety Report 14194091 (Version 2)
Quarter: 2017Q4

REPORT INFORMATION
  Report Type: Report from Study
  Country: AU (occurrence: AU)
  Receive Date: 20171116
  Receipt Date: 20171116
  Transmission Date: 20180321
  Serious: Yes (Death, Hospitalization, Other)
  Sender: FDA-Public Use
  Company Number: PHHY2017AU010502

PATIENT
  Age: 89 Year
  Sex: Male
  Weight: 71 kg

DRUGS (1)
  1. SANDOSTATIN LAR DEPOT [Suspect]
     Active Substance: OCTREOTIDE ACETATE
     Indication: NEUROENDOCRINE TUMOUR
     Dosage: 30 MG, UNK
     Route: 030
     Dates: start: 20170119

REACTIONS (11)
  - Neuroendocrine tumour [Fatal]
  - Abdominal rigidity [Unknown]
  - Abdominal pain [Recovered/Resolved]
  - General physical health deterioration [Not Recovered/Not Resolved]
  - Feeling abnormal [Unknown]
  - Abdominal discomfort [Unknown]
  - Abdominal distension [Unknown]
  - Nausea [Not Recovered/Not Resolved]
  - Depression [Not Recovered/Not Resolved]
  - Malignant neoplasm progression [Not Recovered/Not Resolved]
  - Constipation [Unknown]

NARRATIVE: CASE EVENT DATE: 20171110
